FAERS Safety Report 19562567 (Version 4)
Quarter: 2021Q3

REPORT INFORMATION
  Report Type: Report from Study
  Country: US (occurrence: US)
  Receive Date: 20210716
  Receipt Date: 20210906
  Transmission Date: 20211014
  Serious: Yes (Life-Threatening, Hospitalization, Other)
  Sender: FDA-Public Use
  Company Number: NVSC2021US155380

PATIENT
  Age: 2 Month
  Sex: Male
  Weight: 6.24 kg

DRUGS (19)
  1. GSK1120212 [Suspect]
     Active Substance: TRAMETINIB
     Indication: HYPERTROPHIC CARDIOMYOPATHY
     Dosage: UNK
     Route: 065
     Dates: start: 20210505
  2. GSK1120212 [Suspect]
     Active Substance: TRAMETINIB
     Dosage: UNK
     Route: 065
     Dates: start: 20210626, end: 20210703
  3. PROPRANOLOL [Concomitant]
     Active Substance: PROPRANOLOL HYDROCHLORIDE
     Dosage: UNK
     Route: 065
     Dates: start: 20210704
  4. FENTANYL. [Concomitant]
     Active Substance: FENTANYL
     Indication: PRODUCT USED FOR UNKNOWN INDICATION
     Dosage: UNK
     Route: 065
  5. FENTANYL. [Concomitant]
     Active Substance: FENTANYL
     Dosage: UNK
     Route: 065
     Dates: start: 20210704
  6. LASIX [Concomitant]
     Active Substance: FUROSEMIDE
     Dosage: 2 MG/KG GT BID
     Route: 065
  7. ESMOLOL [Concomitant]
     Active Substance: ESMOLOL HYDROCHLORIDE
     Indication: PRODUCT USED FOR UNKNOWN INDICATION
     Dosage: UNK
     Route: 065
     Dates: start: 20210216, end: 20210301
  8. ALDACTONE [Concomitant]
     Active Substance: SPIRONOLACTONE
     Indication: PRODUCT USED FOR UNKNOWN INDICATION
     Dosage: 1 MG/KG GT, QD
     Route: 065
  9. GSK1120212 [Suspect]
     Active Substance: TRAMETINIB
     Indication: NOONAN SYNDROME
     Dosage: 0.0125MG/KG/DAY
     Route: 065
     Dates: start: 20210226, end: 20210331
  10. MILRINONE [Concomitant]
     Active Substance: MILRINONE
     Indication: PRODUCT USED FOR UNKNOWN INDICATION
     Dosage: UNK
     Route: 065
     Dates: start: 20210215, end: 20210304
  11. CLONIDINE. [Concomitant]
     Active Substance: CLONIDINE
     Indication: PRODUCT USED FOR UNKNOWN INDICATION
     Dosage: UNK
     Route: 065
     Dates: start: 20210627
  12. CLONIDINE. [Concomitant]
     Active Substance: CLONIDINE
     Dosage: 22 MCG, Q8H
     Route: 065
     Dates: start: 20210705
  13. ESMOLOL [Concomitant]
     Active Substance: ESMOLOL HYDROCHLORIDE
     Dosage: UNK
     Route: 065
     Dates: start: 20210626
  14. DIURIL [Concomitant]
     Active Substance: CHLOROTHIAZIDE
     Indication: PRODUCT USED FOR UNKNOWN INDICATION
     Dosage: UNK
     Route: 065
  15. ASA [Concomitant]
     Active Substance: ASPIRIN
     Indication: PROPHYLAXIS
     Dosage: 40.5 MG, QD
     Route: 065
     Dates: start: 20210124, end: 20210713
  16. ATIVAN [Concomitant]
     Active Substance: LORAZEPAM
     Indication: PRODUCT USED FOR UNKNOWN INDICATION
     Dosage: 0.4 MG, Q8H
     Route: 065
     Dates: start: 20210705
  17. PROPRANOLOL [Concomitant]
     Active Substance: PROPRANOLOL HYDROCHLORIDE
     Indication: EXTRASYSTOLES
     Dosage: 1MG/KG/DAY DIVIDED Q8H
     Route: 065
  18. PROPRANOLOL [Concomitant]
     Active Substance: PROPRANOLOL HYDROCHLORIDE
     Indication: TACHYCARDIA
     Dosage: UNK
     Route: 065
     Dates: start: 20210620
  19. LASIX [Concomitant]
     Active Substance: FUROSEMIDE
     Indication: PRODUCT USED FOR UNKNOWN INDICATION
     Dosage: UNK
     Route: 065
     Dates: start: 20210222, end: 20210303

REACTIONS (10)
  - Cardiac arrest [Recovered/Resolved]
  - Haematochezia [Recovered/Resolved]
  - Bradycardia [Recovered/Resolved]
  - Haematochezia [Unknown]
  - Colitis [Unknown]
  - Tracheitis [Recovered/Resolved]
  - Secretion discharge [Unknown]
  - Skin discolouration [Recovered/Resolved]
  - Supraventricular tachycardia [Unknown]
  - Sedation [Unknown]

NARRATIVE: CASE EVENT DATE: 20210331
